FAERS Safety Report 10960341 (Version 1)
Quarter: 2015Q1

REPORT INFORMATION
  Report Type: Spontaneous
  Country: IN (occurrence: None)
  Receive Date: 20150325
  Receipt Date: 20150325
  Transmission Date: 20150721
  Serious: Yes (Hospitalization)
  Sender: FDA-Public Use
  Company Number: UCM201503-000188

PATIENT
  Age: 18 Year
  Sex: Female

DRUGS (2)
  1. ATENOLOL. [Concomitant]
     Active Substance: ATENOLOL
  2. AMLODIPINE [Suspect]
     Active Substance: AMLODIPINE BESYLATE

REACTIONS (13)
  - Shock [None]
  - Metabolic acidosis [None]
  - Acute respiratory distress syndrome [None]
  - Anxiety [None]
  - Intentional overdose [None]
  - Suicide attempt [None]
  - Exposure via ingestion [None]
  - Hypoxia [None]
  - Toxicity to various agents [None]
  - Acute kidney injury [None]
  - Hypotension [None]
  - Sinus tachycardia [None]
  - Chest X-ray abnormal [None]
